FAERS Safety Report 4492233-3 (Version None)
Quarter: 2004Q4

REPORT INFORMATION
  Report Type: 
  Country: None (occurrence: None)
  Receive Date: 20041101
  Receipt Date: 20040707
  Transmission Date: 20050328
  Serious: Yes (Life-Threatening)
  Sender: FDA-Public Use
  Company Number: K200401655

PATIENT
  Sex: Female

DRUGS (1)
  1. EPIPEN [Suspect]
     Indication: LATEX ALLERGY
     Dosage: SINGLE
     Dates: start: 19991112, end: 19991112

REACTIONS (5)
  - ACCIDENTAL NEEDLE STICK [None]
  - HYPOAESTHESIA [None]
  - INJECTION SITE DISCOLOURATION [None]
  - INJECTION SITE NECROSIS [None]
  - OEDEMA PERIPHERAL [None]
